FAERS Safety Report 7335222-3 (Version None)
Quarter: 2011Q1

REPORT INFORMATION
  Report Type: 
  Country: None (occurrence: None)
  Receive Date: 20110302
  Receipt Date: 20110302
  Transmission Date: 20110831
  Serious: Yes (Life-Threatening, Hospitalization)
  Sender: FDA-Public Use
  Company Number: None

PATIENT
  Sex: Male
  Weight: 79.3795 kg

DRUGS (2)
  1. WELCHOL [Suspect]
     Indication: BLOOD TRIGLYCERIDES ABNORMAL
     Dosage: 3 TABLETS TWICE DAILY
     Dates: start: 20101201, end: 20110201
  2. WELCHOL [Suspect]
     Indication: BLOOD CHOLESTEROL ABNORMAL
     Dosage: 3 TABLETS TWICE DAILY
     Dates: start: 20101201, end: 20110201

REACTIONS (10)
  - DIARRHOEA [None]
  - PANCREATIC INFARCTION [None]
  - CULTURE STOOL POSITIVE [None]
  - PANCREATITIS [None]
  - CHOLELITHIASIS [None]
  - VOMITING [None]
  - ESCHERICHIA INFECTION [None]
  - ABDOMINAL PAIN UPPER [None]
  - PNEUMONIA [None]
  - ATRIAL FIBRILLATION [None]
